FAERS Safety Report 9925193 (Version 2)
Quarter: 2014Q1

REPORT INFORMATION
  Report Type: Spontaneous
  Country: US (occurrence: None)
  Receive Date: 20140224
  Receipt Date: 20140311
  Transmission Date: 20141002
  Serious: Yes (Hospitalization, Other)
  Sender: FDA-Public Use
  Company Number: AUR-APL-2014-01815

PATIENT
  Age: 24 Year
  Sex: Male

DRUGS (2)
  1. TRIMETHOPRIM+SULFAMETHOXAZOLE [Suspect]
     Indication: PRODUCT USED FOR UNKNOWN INDICATION
  2. CLINDAMYCIN (CLINDAMYCIN) [Concomitant]

REACTIONS (13)
  - Exfoliative rash [None]
  - Myalgia [None]
  - Blood creatine phosphokinase increased [None]
  - Dermatomyositis [None]
  - Epstein-Barr virus infection [None]
  - Rhabdomyolysis [None]
  - Muscle oedema [None]
  - Dysstasia [None]
  - Gait disturbance [None]
  - Aldolase increased [None]
  - Erythema multiforme [None]
  - Myositis [None]
  - Infectious mononucleosis [None]
